FAERS Safety Report 15540242 (Version 1)
Quarter: 2018Q4

REPORT INFORMATION
  Report Type: Spontaneous
  Country: US (occurrence: US)
  Receive Date: 20181023
  Receipt Date: 20181023
  Transmission Date: 20190205
  Serious: Yes (Death, Hospitalization, Other)
  Sender: FDA-Public Use
  Company Number: US-B.I. PHARMACEUTICALS,INC./RIDGEFIELD-2018-BI-051906

PATIENT
  Sex: Female
  Weight: 102.05 kg

DRUGS (1)
  1. PRADAXA [Suspect]
     Active Substance: DABIGATRAN ETEXILATE MESYLATE
     Indication: ATRIAL FIBRILLATION
     Route: 065
     Dates: start: 20140211, end: 20161212

REACTIONS (4)
  - Gastrointestinal haemorrhage [Fatal]
  - Mesenteric arterial occlusion [Fatal]
  - Intestinal ischaemia [Fatal]
  - Subclavian artery occlusion [Fatal]
